FAERS Safety Report 5922704-1 (Version None)
Quarter: 2008Q4

REPORT INFORMATION
  Report Type: 
  Country: None (occurrence: None)
  Receive Date: 20081017
  Receipt Date: 20081016
  Transmission Date: 20090506
  Serious: Yes (Death)
  Sender: FDA-Public Use
  Company Number: JP-ASTRAZENECA-2008AP06033

PATIENT
  Age: 84 Year
  Sex: Male
  Weight: 46 kg

DRUGS (8)
  1. IRESSA [Suspect]
     Indication: LUNG ADENOCARCINOMA
     Route: 048
     Dates: start: 20080606, end: 20080723
  2. MUCOSTA [Concomitant]
     Indication: ABDOMINAL DISCOMFORT
     Route: 048
     Dates: start: 20080615, end: 20080725
  3. CLARITIN [Concomitant]
     Indication: RASH
     Route: 048
     Dates: start: 20080619, end: 20080725
  4. OXYCONTIN [Concomitant]
     Indication: CHEST PAIN
     Route: 048
     Dates: start: 20080627, end: 20080722
  5. NOVAMIN [Concomitant]
     Indication: NAUSEA
     Route: 048
     Dates: start: 20080627, end: 20080725
  6. LOPEMIN [Concomitant]
     Indication: DIARRHOEA
     Dosage: AS REQUIRED
     Route: 048
     Dates: start: 20080709, end: 20080725
  7. ALBUMIN TANNATE [Concomitant]
     Indication: DIARRHOEA
     Route: 048
     Dates: start: 20080722, end: 20080725
  8. MIYA BM [Concomitant]
     Indication: DIARRHOEA
     Route: 048
     Dates: start: 20080722, end: 20080725

REACTIONS (2)
  - DIARRHOEA [None]
  - LUNG DISORDER [None]
